FAERS Safety Report 7547428-9 (Version None)
Quarter: 2011Q2

REPORT INFORMATION
  Report Type: 
  Country: None (occurrence: None)
  Receive Date: 20110614
  Receipt Date: 20090811
  Transmission Date: 20111010
  Serious: Yes (Hospitalization, Other)
  Sender: FDA-Public Use
  Company Number: US-BAYER-201040295NA

PATIENT
  Age: 69 Year
  Sex: Female
  Weight: 63 kg

DRUGS (17)
  1. MILRINONE [Concomitant]
     Dosage: TITRATE
     Route: 042
     Dates: start: 20060811, end: 20060812
  2. LEVOPHED [Concomitant]
     Dosage: TITRATE
     Route: 042
     Dates: start: 20060811, end: 20060811
  3. TRASYLOL [Suspect]
     Indication: MITRAL VALVE REPLACEMENT
     Dosage: 200 PRIME
     Route: 042
     Dates: start: 20060811, end: 20060811
  4. HEPARIN [Concomitant]
     Dosage: 21,000 UNITS
     Route: 042
     Dates: start: 20060811, end: 20060811
  5. VANCOMYCIN [Concomitant]
     Dosage: 5 GRAM BOTTLE
     Route: 042
     Dates: start: 20060811, end: 20060811
  6. INSULIN [Concomitant]
     Dosage: TITRATE
     Route: 042
     Dates: start: 20060811, end: 20060815
  7. PROTAMINE SULFATE [Concomitant]
     Dosage: 400 MG, UNK
     Route: 042
     Dates: start: 20060811, end: 20060811
  8. TRIDIL [Concomitant]
     Route: 048
  9. ALBUMIN (HUMAN) [Concomitant]
     Dosage: 500 ML, UNK
     Route: 042
     Dates: start: 20060811, end: 20060811
  10. DOPAMINE HCL [Concomitant]
     Dosage: TITRATE
     Route: 042
     Dates: start: 20060811, end: 20060811
  11. TRASYLOL [Suspect]
     Dosage: 100 ML THEN INFUSION OF 50 CC/HOUR
     Route: 042
     Dates: start: 20060811
  12. LISINOPRIL [Concomitant]
     Route: 048
  13. CEFAZOLIN [Concomitant]
     Dosage: 2 G, UNK
     Route: 042
     Dates: start: 20060811, end: 20060811
  14. RED BLOOD CELLS [Concomitant]
     Dosage: 2 U, UNK
     Route: 042
     Dates: start: 20060811
  15. LORATADINE [Concomitant]
     Dosage: 10 MG, QD
     Route: 048
     Dates: start: 20010416
  16. ACETYLSALICYLIC ACID SRT [Concomitant]
     Route: 048
  17. EPINEPHRINE [Concomitant]
     Dosage: TITRATE
     Route: 042
     Dates: start: 20060811, end: 20060812

REACTIONS (11)
  - RENAL FAILURE [None]
  - RENAL FAILURE ACUTE [None]
  - EMOTIONAL DISORDER [None]
  - ANXIETY [None]
  - UNEVALUABLE EVENT [None]
  - RENAL IMPAIRMENT [None]
  - RENAL INJURY [None]
  - STRESS [None]
  - PAIN [None]
  - FEAR [None]
  - INJURY [None]
